FAERS Safety Report 5636284-1 (Version None)
Quarter: 2008Q1

REPORT INFORMATION
  Report Type: 
  Country: None (occurrence: None)
  Receive Date: 20080225
  Receipt Date: 20080218
  Transmission Date: 20080703
  Serious: Yes (Hospitalization)
  Sender: FDA-Public Use
  Company Number: DE-BRISTOL-MYERS SQUIBB COMPANY-13622808

PATIENT
  Age: 62 Year
  Sex: Female

DRUGS (6)
  1. CETUXIMAB [Suspect]
     Indication: COLORECTAL CANCER METASTATIC
     Route: 041
     Dates: start: 20060509, end: 20060627
  2. IRINOTECAN [Suspect]
     Indication: COLORECTAL CANCER METASTATIC
     Route: 042
     Dates: start: 20060509, end: 20060620
  3. FLUOROURACIL [Suspect]
     Indication: COLORECTAL CANCER METASTATIC
     Route: 040
     Dates: start: 20060509, end: 20060627
  4. FOLINIC ACID [Suspect]
     Indication: COLORECTAL CANCER METASTATIC
     Route: 042
     Dates: start: 20060509, end: 20060620
  5. ROCEPHIN [Concomitant]
  6. LOPERAMIDE HCL [Concomitant]

REACTIONS (5)
  - ANAEMIA [None]
  - DIARRHOEA [None]
  - LEUKOPENIA [None]
  - URINARY TRACT INFECTION [None]
  - VOMITING [None]
